FAERS Safety Report 5704536-2 (Version None)
Quarter: 2008Q2

REPORT INFORMATION
  Report Type: 
  Country: None (occurrence: None)
  Receive Date: 20080414
  Receipt Date: 20080403
  Transmission Date: 20081010
  Serious: Yes (Other)
  Sender: FDA-Public Use
  Company Number: NO-ROCHE-531535

PATIENT
  Age: 31 Year
  Sex: Female

DRUGS (4)
  1. ROACCUTAN [Suspect]
     Indication: ACNE
     Route: 048
     Dates: start: 20070901
  2. ROACCUTAN [Suspect]
     Route: 048
  3. LEVOTHYROXINE SODIUM [Concomitant]
     Indication: HYPOTHYROIDISM
     Route: 048
  4. LEVOTHYROXINE SODIUM [Concomitant]
     Dosage: DOSE INCREASED. DRUG STARTED IN NOV/DEC 2007.
     Route: 048
     Dates: start: 20071101

REACTIONS (1)
  - BLOOD THYROID STIMULATING HORMONE INCREASED [None]
